FAERS Safety Report 20684650 (Version 1)
Quarter: 2022Q2

REPORT INFORMATION
  Report Type: Spontaneous
  Country: US (occurrence: None)
  Receive Date: 20220406
  Receipt Date: 20220406
  Transmission Date: 20220721
  Serious: Yes (Other)
  Sender: FDA-Public Use
  Company Number: None

PATIENT
  Age: 73 Year
  Sex: Female
  Weight: 58.5 kg

DRUGS (6)
  1. MYRBETRIQ [Suspect]
     Active Substance: MIRABEGRON
     Indication: Hypertonic bladder
     Dosage: OTHER QUANTITY : 1 TABLET(S);?FREQUENCY : DAILY;?
     Route: 048
     Dates: start: 20220301, end: 20220404
  2. ROSUVASTATIN [Concomitant]
     Active Substance: ROSUVASTATIN
  3. ESTRADIOL [Concomitant]
     Active Substance: ESTRADIOL
  4. CRANBERRY SUPPLEMENT [Concomitant]
  5. CALCIUM [Concomitant]
     Active Substance: CALCIUM
  6. VITAMIN D [Concomitant]
     Active Substance: VITAMIN D NOS

REACTIONS (5)
  - Urticaria [None]
  - Erythema [None]
  - Pruritus [None]
  - Fatigue [None]
  - Hypersensitivity [None]

NARRATIVE: CASE EVENT DATE: 20220404
